FAERS Safety Report 22251294 (Version 1)
Quarter: 2023Q2

REPORT INFORMATION
  Report Type: Spontaneous
  Country: US (occurrence: None)
  Receive Date: 20230425
  Receipt Date: 20230425
  Transmission Date: 20230721
  Serious: Yes (Disabling)
  Sender: FDA-Public Use
  Company Number: None

PATIENT
  Age: 74 Year
  Sex: Female
  Weight: 108 kg

DRUGS (19)
  1. DEXLANSOPRAZOLE [Suspect]
     Active Substance: DEXLANSOPRAZOLE
     Indication: Barrett^s oesophagus
     Dosage: 1 CAPSULE ORAL
     Route: 048
  2. OXYGEN [Concomitant]
     Active Substance: OXYGEN
  3. DEVICE [Concomitant]
     Active Substance: DEVICE
  4. DEXILANT [Concomitant]
     Active Substance: DEXLANSOPRAZOLE
  5. PIOGLITAZONE [Concomitant]
     Active Substance: PIOGLITAZONE
  6. LOSARTAN [Concomitant]
     Active Substance: LOSARTAN
  7. HYDROCHLOROTHIAZIDE [Concomitant]
     Active Substance: HYDROCHLOROTHIAZIDE
  8. METFORMIN [Concomitant]
     Active Substance: METFORMIN HYDROCHLORIDE
  9. GABAPENTIN [Concomitant]
     Active Substance: GABAPENTIN
  10. ATORVASTATIN [Concomitant]
     Active Substance: ATORVASTATIN
  11. IBANDRONATE SODIUM [Concomitant]
     Active Substance: IBANDRONATE SODIUM
  12. ESTRADIOL [Concomitant]
     Active Substance: ESTRADIOL
  13. MOMETASONE [Concomitant]
     Active Substance: MOMETASONE
  14. CALCIPOTRIENE [Concomitant]
     Active Substance: CALCIPOTRIENE
  15. nervive [Concomitant]
  16. IRON [Concomitant]
     Active Substance: IRON
  17. CASANTHRANOL\DOCUSATE SODIUM [Concomitant]
     Active Substance: CASANTHRANOL\DOCUSATE SODIUM
  18. TYLENOL PM [Concomitant]
     Active Substance: ACETAMINOPHEN\DIPHENHYDRAMINE
  19. allergy relief spray [Concomitant]

REACTIONS (5)
  - Gastrooesophageal reflux disease [None]
  - Abdominal pain [None]
  - Tongue discomfort [None]
  - Oral mucosal exfoliation [None]
  - Product substitution issue [None]

NARRATIVE: CASE EVENT DATE: 20230419
